FAERS Safety Report 8560188-8 (Version None)
Quarter: 2012Q2

REPORT INFORMATION
  Report Type: 
  Country: None (occurrence: None)
  Receive Date: 20120418
  Receipt Date: 20090511
  Transmission Date: 20120825
  Serious: Yes (Other)
  Sender: FDA-Public Use
  Company Number: PHEH2009US04730

PATIENT
  Sex: Female

DRUGS (2)
  1. RECLAST [Concomitant]
  2. ESTRADIOL [Suspect]

REACTIONS (3)
  - ABDOMINAL DISTENSION [None]
  - BACK PAIN [None]
  - BREAST CANCER [None]
